FAERS Safety Report 8574187 (Version 2)
Quarter: 2012Q4

REPORT INFORMATION
  Report Type: Spontaneous
  Country: US (occurrence: None)
  Receive Date: 20120517
  Receipt Date: 20120919
  Transmission Date: 20130627
  Serious: Yes (Death)
  Sender: FDA-Public Use
  Company Number: ADR-2012-00896

PATIENT
  Age: 82 Year
  Sex: Male

DRUGS (3)
  1. BACLOFEN [Suspect]
     Dosage: 18.19MCG/DAY
  2. MORPHINE [Concomitant]
  3. CLONIDINE [Concomitant]

REACTIONS (1)
  - DEATH [None]
